FAERS Safety Report 10665080 (Version 1)
Quarter: 2014Q4

REPORT INFORMATION
  Report Type: Spontaneous
  Country: US (occurrence: US)
  Receive Date: 20141219
  Receipt Date: 20141219
  Transmission Date: 20150529
  Serious: No
  Sender: FDA-Public Use
  Company Number: US-GLAXOSMITHKLINE-A1056632A

PATIENT

DRUGS (2)
  1. HOMEOPATHIC MEDICATION [Concomitant]
  2. ARZERRA [Suspect]
     Active Substance: OFATUMUMAB
     Indication: CHRONIC LYMPHOCYTIC LEUKAEMIA
     Dosage: UNKNOWN STRENGTH. TREATMENT EVERY 2 WEEKS, EVERY 3 WEEKS,  AND EVERY 4 WEEKS.
     Route: 065

REACTIONS (4)
  - White blood cell count increased [Unknown]
  - Fluid retention [Unknown]
  - Adverse event [Unknown]
  - Fatigue [Unknown]
